FAERS Safety Report 9037006 (Version 2)
Quarter: 2013Q2

REPORT INFORMATION
  Report Type: Spontaneous
  Country: JP (occurrence: None)
  Receive Date: 20130115
  Receipt Date: 20130605
  Transmission Date: 20140414
  Serious: Yes (Hospitalization)
  Sender: FDA-Public Use
  Company Number: 2013-000061

PATIENT
  Age: 74 Year
  Sex: Female

DRUGS (7)
  1. BENET [Suspect]
     Indication: OSTEOPOROSIS
     Route: 048
     Dates: start: 20121004, end: 20121116
  2. TAKEPRON (LANSOPRAZOLE) [Suspect]
     Indication: GASTROOESOPHAGEAL REFLUX DISEASE
     Dosage: 2:30 MG, FREQUENCY UNKNOWN, ORAL
     Route: 048
     Dates: start: 20120908, end: 20121116
  3. FOLIAMIN [Suspect]
     Indication: ANAEMIA FOLATE DEFICIENCY
     Route: 048
     Dates: start: 20121018, end: 20121116
  4. BAKTAR [Suspect]
     Indication: PNEUMOCYSTIS JIROVECII PNEUMONIA
     Route: 048
     Dates: start: 20120922, end: 20121116
  5. PREDONINE (PRENDISOLONE) [Concomitant]
  6. PENTASA (MESALAZINE) [Concomitant]
  7. BIOFERMIN (BACILLUS SUBTILIS, LACTOBACILLUS, ACIDOPHILUS, STREPTOCOCCUS FAECALIS) [Concomitant]

REACTIONS (4)
  - Liver disorder [None]
  - Hepatic function abnormal [None]
  - Jaundice [None]
  - Cholelithiasis [None]
